FAERS Safety Report 13822474 (Version 5)
Quarter: 2017Q3

REPORT INFORMATION
  Report Type: Spontaneous
  Country: US (occurrence: US)
  Receive Date: 20170801
  Receipt Date: 20170921
  Transmission Date: 20171127
  Serious: Yes (Other)
  Sender: FDA-Public Use
  Company Number: US-BIOGEN-2017BI00440076

PATIENT
  Age: 58 Year
  Sex: Female

DRUGS (6)
  1. PRILOSEC [Concomitant]
     Active Substance: OMEPRAZOLE MAGNESIUM
     Indication: PRODUCT USED FOR UNKNOWN INDICATION
     Route: 065
  2. AVONEX [Suspect]
     Active Substance: INTERFERON BETA-1A
     Route: 030
  3. ZANAFLEX [Concomitant]
     Active Substance: TIZANIDINE HYDROCHLORIDE
     Indication: MUSCLE SPASMS
     Route: 048
     Dates: start: 201608
  4. AVONEX [Suspect]
     Active Substance: INTERFERON BETA-1A
     Indication: SECONDARY PROGRESSIVE MULTIPLE SCLEROSIS
     Route: 030
  5. LASIX [Concomitant]
     Active Substance: FUROSEMIDE
     Indication: PRODUCT USED FOR UNKNOWN INDICATION
     Route: 065
  6. XANAX [Concomitant]
     Active Substance: ALPRAZOLAM
     Indication: PRODUCT USED FOR UNKNOWN INDICATION
     Route: 065

REACTIONS (25)
  - Pneumonia [Recovered/Resolved]
  - Herpes zoster [Recovered/Resolved]
  - Headache [Unknown]
  - Urinary retention [Unknown]
  - Musculoskeletal stiffness [Unknown]
  - Axonal neuropathy [Unknown]
  - Areflexia [Unknown]
  - Dry eye [Unknown]
  - Visual impairment [Unknown]
  - Central nervous system necrosis [Not Recovered/Not Resolved]
  - Ataxia [Unknown]
  - Pain in extremity [Unknown]
  - Fatigue [Unknown]
  - Hypoaesthesia [Unknown]
  - Abdominal rigidity [Unknown]
  - Intentional product use issue [Unknown]
  - Micturition urgency [Unknown]
  - Muscle spasticity [Unknown]
  - Multiple sclerosis [Unknown]
  - Ulcerative keratitis [Recovered/Resolved]
  - Gait inability [Unknown]
  - Muscle spasms [Recovered/Resolved]
  - Medical device site swelling [Unknown]
  - Sensory disturbance [Unknown]
  - Device allergy [Unknown]

NARRATIVE: CASE EVENT DATE: 20131209
